FAERS Safety Report 16591402 (Version 3)
Quarter: 2019Q3

REPORT INFORMATION
  Report Type: Spontaneous
  Country: TH (occurrence: SD)
  Receive Date: 20190718
  Receipt Date: 20190724
  Transmission Date: 20191004
  Serious: Yes (Other)
  Sender: FDA-Public Use
  Company Number: TH-ROCHE-2350676

PATIENT
  Sex: Female

DRUGS (1)
  1. ALECENSA [Suspect]
     Active Substance: ALECTINIB HYDROCHLORIDE
     Indication: NON-SMALL CELL LUNG CANCER
     Dosage: 4 CAPSULE TWICE A DAY
     Route: 048
     Dates: start: 20171204

REACTIONS (4)
  - Pleural effusion [Unknown]
  - Positron emission tomogram abnormal [Unknown]
  - Atelectasis [Unknown]
  - Pneumothorax [Unknown]
